FAERS Safety Report 6851604-8 (Version None)
Quarter: 2010Q3

REPORT INFORMATION
  Report Type: 
  Country: None (occurrence: None)
  Receive Date: 20100717
  Receipt Date: 20080220
  Transmission Date: 20110219
  Serious: No
  Sender: FDA-Public Use
  Company Number: US-PFIZER INC-2008006944

PATIENT
  Sex: Female

DRUGS (5)
  1. CHANTIX [Suspect]
     Indication: SMOKING CESSATION THERAPY
     Dates: start: 20070101
  2. WELLBUTRIN [Interacting]
     Indication: DEPRESSION
  3. DEPAKOTE [Interacting]
     Indication: BIPOLAR DISORDER
  4. KLONOPIN [Concomitant]
  5. DRUG, UNSPECIFIED [Concomitant]

REACTIONS (3)
  - ABNORMAL DREAMS [None]
  - DRUG INEFFECTIVE [None]
  - DRUG INTERACTION [None]
